FAERS Safety Report 23251377 (Version 2)
Quarter: 2023Q4

REPORT INFORMATION
  Report Type: Report from Study
  Country: US (occurrence: US)
  Receive Date: 20231201
  Receipt Date: 20231213
  Transmission Date: 20240110
  Serious: Yes (Death, Hospitalization)
  Sender: FDA-Public Use
  Company Number: US-Eisai-EC-2023-150660

PATIENT
  Age: 74 Year
  Sex: Male
  Weight: 67.6 kg

DRUGS (3)
  1. LENVIMA [Suspect]
     Active Substance: LENVATINIB
     Indication: Renal cell carcinoma
     Route: 048
     Dates: start: 20230925, end: 20231101
  2. LENVIMA [Suspect]
     Active Substance: LENVATINIB
     Indication: Renal cancer
  3. KEYTRUDA [Concomitant]
     Active Substance: PEMBROLIZUMAB
     Indication: Renal cell carcinoma
     Dosage: DOSE UNKNOWN
     Route: 042

REACTIONS (9)
  - Intestinal perforation [Unknown]
  - Sepsis [Fatal]
  - Malignant neoplasm progression [Fatal]
  - Acute kidney injury [Not Recovered/Not Resolved]
  - Cellulitis [Not Recovered/Not Resolved]
  - Oral pain [Unknown]
  - Insomnia [Unknown]
  - White blood cell count decreased [Unknown]
  - Constipation [Unknown]

NARRATIVE: CASE EVENT DATE: 20230101
